FAERS Safety Report 5578094-X (Version None)
Quarter: 2007Q4

REPORT INFORMATION
  Report Type: 
  Country: None (occurrence: None)
  Receive Date: 20071231
  Receipt Date: 20071221
  Transmission Date: 20080405
  Serious: Yes (Hospitalization, Other)
  Sender: FDA-Public Use
  Company Number: US-MERCK-0706USA02015

PATIENT
  Age: 57 Year
  Sex: Male

DRUGS (2)
  1. FOSAMAX [Suspect]
     Indication: OSTEOPOROSIS
     Route: 048
     Dates: start: 20020101, end: 20050101
  2. PRILOSEC [Concomitant]
     Indication: DYSPEPSIA
     Route: 065
     Dates: start: 19900101

REACTIONS (13)
  - ATONIC URINARY BLADDER [None]
  - ATRIAL FIBRILLATION [None]
  - BLOOD PRESSURE INCREASED [None]
  - DEAFNESS [None]
  - DEHYDRATION [None]
  - DENTAL CARIES [None]
  - FURUNCLE [None]
  - GINGIVAL BLEEDING [None]
  - ORAL PAIN [None]
  - PAIN IN JAW [None]
  - PANCREATITIS [None]
  - TEMPOROMANDIBULAR JOINT SYNDROME [None]
  - TOOTH LOSS [None]
